FAERS Safety Report 9059979 (Version 1)
Quarter: 2013Q1

REPORT INFORMATION
  Report Type: Spontaneous
  Country: US (occurrence: None)
  Receive Date: 20130207
  Receipt Date: 20130207
  Transmission Date: 20140127
  Serious: Yes (Hospitalization)
  Sender: FDA-Public Use
  Company Number: None

PATIENT
  Sex: Male
  Weight: 109.1 kg

DRUGS (5)
  1. ZOLEDRONIC ACID (ZOLENDRONATE, ZOMETA) [Suspect]
  2. ABIRATERONE [Concomitant]
  3. COUMADIN [Concomitant]
  4. PREDNISONE [Concomitant]
  5. ZOLADEX [Concomitant]

REACTIONS (13)
  - Dizziness [None]
  - Nausea [None]
  - Visual impairment [None]
  - Presyncope [None]
  - Loss of consciousness [None]
  - Eye movement disorder [None]
  - Anaemia [None]
  - Melaena [None]
  - Upper gastrointestinal haemorrhage [None]
  - Gastric ulcer [None]
  - Gastritis [None]
  - Duodenitis [None]
  - Tooth abscess [None]
